FAERS Safety Report 21452437 (Version 1)
Quarter: 2022Q4

REPORT INFORMATION
  Report Type: Spontaneous
  Country: US (occurrence: None)
  Receive Date: 20221012
  Receipt Date: 20221012
  Transmission Date: 20230113
  Serious: Yes (Hospitalization)
  Sender: FDA-Public Use
  Company Number: None

PATIENT
  Age: 59 Year
  Sex: Male
  Weight: 67.86 kg

DRUGS (21)
  1. CAPECITABINE [Suspect]
     Active Substance: CAPECITABINE
     Indication: Oesophageal carcinoma
     Dosage: FREQUENCY : DAILY;?
     Route: 048
  2. ACETAMINOPHEN [Concomitant]
  3. ALBUTEROL [Concomitant]
  4. ATORVASTATIN [Concomitant]
  5. AZITHROMYCIN [Concomitant]
  6. BIKTARVY [Concomitant]
  7. BRIMONIDINE [Concomitant]
  8. CREON [Concomitant]
     Active Substance: PANCRELIPASE AMYLASE\PANCRELIPASE LIPASE\PANCRELIPASE PROTEASE
  9. DEXBROX OTIC SOLUTION [Concomitant]
  10. LEVETIRACETAM [Concomitant]
  11. LOKELMA [Concomitant]
  12. MEDROXYPROGESTERONE [Concomitant]
  13. METOPROLOL [Concomitant]
  14. MIDODRINE [Concomitant]
  15. NEPHRO-VITE [Concomitant]
  16. NYSTATIN [Concomitant]
  17. ONDANSETRON [Concomitant]
  18. QUETIAPINE [Concomitant]
  19. SODIUM CHLORIDE [Concomitant]
  20. SULFAMETHOXAZOLE [Concomitant]
  21. TRAZODONE [Concomitant]
     Active Substance: TRAZODONE HYDROCHLORIDE

REACTIONS (2)
  - Unresponsive to stimuli [None]
  - Oxygen saturation decreased [None]

NARRATIVE: CASE EVENT DATE: 20221010
